FAERS Safety Report 9586187 (Version 1)
Quarter: 2013Q4

REPORT INFORMATION
  Report Type: Spontaneous
  Country: US (occurrence: None)
  Receive Date: 20131002
  Receipt Date: 20131002
  Transmission Date: 20140711
  Serious: Yes (Disabling)
  Sender: FDA-Public Use
  Company Number: None

PATIENT
  Age: 37 Year
  Sex: Female
  Weight: 61.24 kg

DRUGS (1)
  1. LEVAQUIN [Suspect]
     Indication: BRONCHITIS
     Dosage: 1 PER DAY  ONCE DAILY  TAKEN BY MOUTH
     Route: 048
     Dates: start: 20061124, end: 20061130

REACTIONS (12)
  - Dizziness [None]
  - Arthralgia [None]
  - Fatigue [None]
  - Dyspnoea [None]
  - Basedow^s disease [None]
  - Paraesthesia [None]
  - Psoriasis [None]
  - Musculoskeletal disorder [None]
  - Hypoaesthesia [None]
  - Discomfort [None]
  - Asthenia [None]
  - Pregnancy [None]
